FAERS Safety Report 15114317 (Version 1)
Quarter: 2018Q3

REPORT INFORMATION
  Report Type: Spontaneous
  Country: DE (occurrence: DE)
  Receive Date: 20180706
  Receipt Date: 20180706
  Transmission Date: 20181010
  Serious: Yes (Other)
  Sender: FDA-Public Use
  Company Number: DE-WEST-WARD PHARMACEUTICALS CORP.-DE-H14001-18-05456

PATIENT
  Age: 74 Year
  Sex: Male
  Weight: 74 kg

DRUGS (14)
  1. FOLINIC ACID [Suspect]
     Active Substance: LEUCOVORIN
     Indication: COLORECTAL CANCER METASTATIC
     Dosage: 760 MG, UNK
     Route: 065
     Dates: start: 20180430
  2. FLUOROURACIL. [Suspect]
     Active Substance: FLUOROURACIL
     Dosage: 752 UNK, UNK
     Route: 040
     Dates: start: 20180516
  3. PANITUMUMAB [Suspect]
     Active Substance: PANITUMUMAB
     Indication: COLORECTAL CANCER METASTATIC
     Dosage: 444 MG, UNK
     Route: 042
     Dates: start: 20180516
  4. FENTANYL. [Concomitant]
     Active Substance: FENTANYL
     Indication: PAIN
     Dosage: 12.5 MUG, UNK
     Route: 062
     Dates: start: 20160710
  5. FLUOROURACIL. [Suspect]
     Active Substance: FLUOROURACIL
     Indication: COLORECTAL CANCER METASTATIC
     Dosage: 2280 MG, UNK
     Route: 042
     Dates: start: 20180430
  6. MINOCYCLIN?RATIOPHARM [Concomitant]
     Indication: PROPHYLAXIS
     Dosage: 50 MG, BID
     Route: 048
     Dates: start: 20180516
  7. PREDNISOLON?RATIOPHARM [Concomitant]
     Indication: COLITIS ULCERATIVE
     Dosage: 7.5 MG, QD
     Route: 048
     Dates: start: 20170701
  8. BISOPROLOL?RATIOPHARM [Concomitant]
     Indication: TACHYCARDIA
     Dosage: 2.5 MG, QD
     Route: 048
     Dates: start: 20180517
  9. IRINOTECAN [Suspect]
     Active Substance: IRINOTECAN
     Indication: COLORECTAL CANCER METASTATIC
     Dosage: 342 MG, UNK
     Route: 065
     Dates: start: 20180430
  10. FLUOROURACIL. [Suspect]
     Active Substance: FLUOROURACIL
     Dosage: 4512 UNK, UNK
     Route: 042
     Dates: start: 20180516
  11. FOLINIC ACID [Suspect]
     Active Substance: LEUCOVORIN
     Dosage: 752 MG, UNK
     Route: 065
     Dates: start: 20180516
  12. FLUOROURACIL. [Suspect]
     Active Substance: FLUOROURACIL
     Dosage: 1520 MG, UNK
     Route: 040
     Dates: start: 20180430
  13. SPIRIVA [Concomitant]
     Active Substance: TIOTROPIUM BROMIDE MONOHYDRATE
     Indication: CHRONIC OBSTRUCTIVE PULMONARY DISEASE
     Dosage: 18 MUG, QD
     Route: 055
     Dates: start: 20150101
  14. IRINOTECAN [Suspect]
     Active Substance: IRINOTECAN
     Dosage: 338 UNK, UNK
     Route: 065
     Dates: start: 20180516

REACTIONS (1)
  - Chronic kidney disease [Recovering/Resolving]

NARRATIVE: CASE EVENT DATE: 20180530
